FAERS Safety Report 24624362 (Version 1)
Quarter: 2024Q4

REPORT INFORMATION
  Report Type: Spontaneous
  Country: US (occurrence: None)
  Receive Date: 20241114
  Receipt Date: 20241114
  Transmission Date: 20250114
  Serious: Yes (Hospitalization, Disabling, Other)
  Sender: Public
  Company Number: None

PATIENT
  Age: 52 Year
  Sex: Female
  Weight: 72.9 kg

DRUGS (8)
  1. OZEMPIC [Suspect]
     Active Substance: SEMAGLUTIDE
     Indication: Diabetes mellitus
     Dates: start: 20240221, end: 20240401
  2. Libre sensor 3 [Concomitant]
  3. ASPIRIN [Concomitant]
     Active Substance: ASPIRIN
  4. LASIX [Concomitant]
     Active Substance: FUROSEMIDE
  5. LISINOPRIL [Concomitant]
     Active Substance: LISINOPRIL
  6. bisiniprol [Concomitant]
  7. B12 [Concomitant]
  8. TEA [Concomitant]
     Active Substance: TEA LEAF

REACTIONS (6)
  - Nephrolithiasis [None]
  - Myocardial infarction [None]
  - Gait disturbance [None]
  - Muscular weakness [None]
  - Sepsis [None]
  - Intestinal obstruction [None]

NARRATIVE: CASE EVENT DATE: 20240223
